FAERS Safety Report 11522436 (Version 1)
Quarter: 2015Q3

REPORT INFORMATION
  Report Type: Spontaneous
  Country: US (occurrence: US)
  Receive Date: 20150903
  Receipt Date: 20150903
  Transmission Date: 20151125
  Serious: No
  Sender: FDA-Public Use
  Company Number: US-ELI_LILLY_AND_COMPANY-US201212000689

PATIENT
  Sex: Female

DRUGS (6)
  1. CYMBALTA [Suspect]
     Active Substance: DULOXETINE HYDROCHLORIDE
     Indication: DEPRESSION
     Dosage: 60 MG, QD
     Dates: start: 201210, end: 201210
  2. CLONAZEPAM. [Concomitant]
     Active Substance: CLONAZEPAM
     Indication: ANXIETY
  3. MAXZIDE [Concomitant]
     Active Substance: HYDROCHLOROTHIAZIDE\TRIAMTERENE
     Indication: FLUID RETENTION
  4. PROTONIX [Concomitant]
     Active Substance: PANTOPRAZOLE SODIUM
     Indication: GASTRIC DISORDER
  5. SYNTHROID [Concomitant]
     Active Substance: LEVOTHYROXINE SODIUM
     Indication: THYROID DISORDER
  6. CYMBALTA [Suspect]
     Active Substance: DULOXETINE HYDROCHLORIDE
     Dosage: 60 MG, QD
     Dates: start: 201210, end: 20121124

REACTIONS (9)
  - Pain [Unknown]
  - Decreased interest [Unknown]
  - Crying [Unknown]
  - Emotional disorder [Unknown]
  - Intentional product misuse [Unknown]
  - Arthralgia [Unknown]
  - Anxiety [Unknown]
  - Fear [Unknown]
  - Drug withdrawal syndrome [Unknown]
